FAERS Safety Report 6832617-9 (Version None)
Quarter: 2010Q3

REPORT INFORMATION
  Report Type: 
  Country: None (occurrence: None)
  Receive Date: 20100712
  Receipt Date: 20070601
  Transmission Date: 20110219
  Serious: No
  Sender: FDA-Public Use
  Company Number: US-PFIZER INC-2007020223

PATIENT
  Age: 53 Year
  Sex: Female
  Weight: 54.43 kg

DRUGS (3)
  1. VARENICLINE [Suspect]
     Dates: start: 20070305
  2. VICODIN [Interacting]
     Indication: BACK PAIN
  3. DRUG, UNSPECIFIED [Concomitant]

REACTIONS (2)
  - DRUG INTERACTION [None]
  - THERAPEUTIC RESPONSE DECREASED [None]
